FAERS Safety Report 5869969-2 (Version None)
Quarter: 2008Q3

REPORT INFORMATION
  Report Type: 
  Country: None (occurrence: None)
  Receive Date: 20080904
  Receipt Date: 20080904
  Transmission Date: 20090109
  Serious: Yes (Hospitalization)
  Sender: FDA-Public Use
  Company Number: PHEH1999US04790

PATIENT
  Sex: Male
  Weight: 72.5 kg

DRUGS (14)
  1. SIMULECT SIC+ [Suspect]
     Dosage: 20 MG, DAY 0 + DAY 4
     Route: 042
     Dates: start: 19990917
  2. THEO-DUR [Concomitant]
  3. CARDURA [Concomitant]
  4. ZOLOFT [Concomitant]
  5. NEORAL [Concomitant]
  6. PREDNISONE TAB [Concomitant]
  7. NORVASC [Concomitant]
  8. VALPROIC ACID [Concomitant]
  9. INSULIN [Concomitant]
  10. MYCELEX [Concomitant]
  11. ALBUTEROL [Concomitant]
  12. PRILOSEC [Concomitant]
  13. CELLCEPT [Concomitant]
  14. POTASSIUM CHLORIDE [Concomitant]

REACTIONS (2)
  - PERICARDIAL EFFUSION [None]
  - PNEUMONIA [None]
